FAERS Safety Report 13616286 (Version 1)
Quarter: 2017Q2

REPORT INFORMATION
  Report Type: Spontaneous
  Country: US (occurrence: US)
  Receive Date: 20170605
  Receipt Date: 20170605
  Transmission Date: 20170830
  Serious: Yes (Hospitalization)
  Sender: FDA-Public Use
  Company Number: None

PATIENT
  Age: 80 Year
  Sex: Male
  Weight: 80 kg

DRUGS (1)
  1. CHLORTHALIDONE. [Suspect]
     Active Substance: CHLORTHALIDONE
     Indication: HYPERTENSION
     Route: 048
     Dates: start: 20110816, end: 20120713

REACTIONS (4)
  - Diarrhoea [None]
  - Dizziness [None]
  - Asthenia [None]
  - Blood magnesium decreased [None]

NARRATIVE: CASE EVENT DATE: 20120713
